FAERS Safety Report 25899893 (Version 1)
Quarter: 2025Q4

REPORT INFORMATION
  Report Type: Spontaneous
  Country: CA (occurrence: CA)
  Receive Date: 20251009
  Receipt Date: 20251009
  Transmission Date: 20260118
  Serious: Yes (Other)
  Sender: CELLTRION
  Company Number: CA-CELLTRION INC.-2025CA036098

PATIENT

DRUGS (24)
  1. INFLIXIMAB [Suspect]
     Active Substance: INFLIXIMAB
     Indication: Rheumatoid arthritis
     Dosage: LOADING - 5 MG/KG - IV (INTRAVENOUS) WEEK 0,2,6
     Route: 042
     Dates: start: 20250916
  2. INFLIXIMAB [Suspect]
     Active Substance: INFLIXIMAB
     Dosage: 5 MG/KG, (MAINTENANCE) EVERY 8 WEEKS
     Route: 042
     Dates: start: 20250916
  3. RITUXIMAB [Concomitant]
     Active Substance: RITUXIMAB
     Dosage: CURRENT
  4. PREGABALIN [Concomitant]
     Active Substance: PREGABALIN
     Dosage: CURRENT
  5. PREGABALIN [Concomitant]
     Active Substance: PREGABALIN
     Dosage: CURRENT
  6. LEFLUNOMIDE [Concomitant]
     Active Substance: LEFLUNOMIDE
     Dosage: CURRENT
  7. LEFLUNOMIDE [Concomitant]
     Active Substance: LEFLUNOMIDE
     Dosage: CURRENT
  8. BISOPROLOL [Concomitant]
     Active Substance: BISOPROLOL
     Dosage: CURRENT
  9. BISOPROLOL [Concomitant]
     Active Substance: BISOPROLOL
     Dosage: CURRENT
  10. METHOTREXATE [Concomitant]
     Active Substance: METHOTREXATE
     Dosage: CURRENT
  11. METHOTREXATE [Concomitant]
     Active Substance: METHOTREXATE
     Dosage: CURRENT
  12. METHOTREXATE [Concomitant]
     Active Substance: METHOTREXATE
     Dosage: CURRENT
  13. FOLIC ACID [Concomitant]
     Active Substance: FOLIC ACID
     Dosage: CURRENT
  14. FOLIC ACID [Concomitant]
     Active Substance: FOLIC ACID
     Dosage: CURRENT
  15. HYDROMORPHONE [Concomitant]
     Active Substance: HYDROMORPHONE
     Dosage: CURRENT
  16. RISEDRONATE SODIUM [Concomitant]
     Active Substance: RISEDRONATE SODIUM
     Dosage: CURRENT
  17. RISEDRONATE SODIUM [Concomitant]
     Active Substance: RISEDRONATE SODIUM
     Dosage: CURRENT
  18. PREDNISONE [Concomitant]
     Active Substance: PREDNISONE
     Dosage: CURRENT
  19. PREDNISONE [Concomitant]
     Active Substance: PREDNISONE
     Dosage: CURRENT
  20. DESVENLAFAXINE [Concomitant]
     Active Substance: DESVENLAFAXINE
     Dosage: CURRENT
  21. DESVENLAFAXINE [Concomitant]
     Active Substance: DESVENLAFAXINE
     Dosage: CURRENT
  22. RAMIPRIL [Concomitant]
     Active Substance: RAMIPRIL
     Dosage: CURRENT
  23. RAMIPRIL [Concomitant]
     Active Substance: RAMIPRIL
     Dosage: CURRENT
  24. ROSUVASTATIN [Concomitant]
     Active Substance: ROSUVASTATIN
     Dosage: CURRENT

REACTIONS (1)
  - Precancerous skin lesion [Recovered/Resolved]
